FAERS Safety Report 5375182-8 (Version None)
Quarter: 2007Q2

REPORT INFORMATION
  Report Type: 
  Country: None (occurrence: None)
  Receive Date: 20070625
  Receipt Date: 20070507
  Transmission Date: 20071010
  Serious: Yes (Hospitalization)
  Sender: FDA-Public Use
  Company Number: 07P-163-0361653-00

PATIENT
  Age: 59 Year
  Sex: Female
  Weight: 60.782 kg

DRUGS (9)
  1. HUMIRA [Suspect]
     Indication: RHEUMATOID ARTHRITIS
     Dosage: 40 MG, 1 IN 2 WK, SUBCUTANEOUS
     Route: 058
     Dates: start: 20040614, end: 20051206
  2. PREDNISONE [Concomitant]
  3. PARACETAMOL [Concomitant]
  4. LOVASTATIN [Concomitant]
  5. AMLODIPINE BESYLATE [Concomitant]
  6. METHOTREXATE SODIUM [Concomitant]
  7. BONIVA [Concomitant]
  8. PREGAMAL [Concomitant]
  9. LUNESTA [Concomitant]

REACTIONS (5)
  - CHILLS [None]
  - DIFFUSE LARGE B-CELL LYMPHOMA [None]
  - HYPERHIDROSIS [None]
  - LYMPHADENOPATHY [None]
  - PHARYNGOLARYNGEAL PAIN [None]
